FAERS Safety Report 5286559-3 (Version None)
Quarter: 2007Q2

REPORT INFORMATION
  Report Type: 
  Country: None (occurrence: None)
  Receive Date: 20070404
  Receipt Date: 20070329
  Transmission Date: 20071010
  Serious: Yes (Hospitalization)
  Sender: FDA-Public Use
  Company Number: FR-ELI_LILLY_AND_COMPANY-FR200703006272

PATIENT
  Age: 41 Year
  Sex: Female
  Weight: 66 kg

DRUGS (3)
  1. GEMZAR [Suspect]
     Indication: BREAST CANCER METASTATIC
     Dosage: UNK, OTHER
     Route: 042
     Dates: start: 20061020
  2. TAXOL [Concomitant]
     Indication: BREAST CANCER METASTATIC
     Dosage: UNK, WEEKLY (1/W)
     Route: 042
     Dates: start: 20061020
  3. AVASTIN [Concomitant]
     Indication: BREAST CANCER METASTATIC
     Dosage: UNK, OTHER
     Route: 042
     Dates: start: 20061020, end: 20070212

REACTIONS (1)
  - INTESTINAL ULCER [None]
